FAERS Safety Report 13226859 (Version 2)
Quarter: 2017Q1

REPORT INFORMATION
  Report Type: Spontaneous
  Country: US (occurrence: US)
  Receive Date: 20170213
  Receipt Date: 20170227
  Transmission Date: 20170428
  Serious: No
  Sender: FDA-Public Use
  Company Number: US-PFIZER INC-2017055130

PATIENT
  Age: 13 Year
  Sex: Male

DRUGS (7)
  1. GEODON [Suspect]
     Active Substance: ZIPRASIDONE HYDROCHLORIDE\ZIPRASIDONE MESYLATE
     Dosage: 20 MG, UNK
  2. ARIPIPRAZOLE. [Suspect]
     Active Substance: ARIPIPRAZOLE
     Indication: AUTISM SPECTRUM DISORDER
     Dosage: 10 MG, DAILY
     Route: 048
     Dates: start: 20151026, end: 20170111
  3. GEODON [Suspect]
     Active Substance: ZIPRASIDONE HYDROCHLORIDE\ZIPRASIDONE MESYLATE
     Dosage: 10 MG, 2X/DAY
  4. GEODON [Suspect]
     Active Substance: ZIPRASIDONE HYDROCHLORIDE\ZIPRASIDONE MESYLATE
     Dosage: 5 MG, 2X/DAY
  5. ARIPIPRAZOLE. [Suspect]
     Active Substance: ARIPIPRAZOLE
     Indication: ANXIETY
  6. ARIPIPRAZOLE. [Suspect]
     Active Substance: ARIPIPRAZOLE
     Indication: OPPOSITIONAL DEFIANT DISORDER
  7. CYMBALTA [Concomitant]
     Active Substance: DULOXETINE HYDROCHLORIDE
     Dosage: UNK

REACTIONS (11)
  - Glycosylated haemoglobin increased [Unknown]
  - Fatigue [Recovered/Resolved]
  - Withdrawal syndrome [Unknown]
  - Hyperhidrosis [Recovered/Resolved]
  - Lethargy [Recovered/Resolved]
  - Palpitations [Recovered/Resolved]
  - Activities of daily living impaired [Unknown]
  - Eye movement disorder [Recovered/Resolved]
  - Weight increased [Unknown]
  - Nervousness [Recovered/Resolved]
  - Agitation [Recovered/Resolved]

NARRATIVE: CASE EVENT DATE: 2016
